FAERS Safety Report 5272543-2 (Version None)
Quarter: 2007Q1

REPORT INFORMATION
  Report Type: 
  Country: None (occurrence: None)
  Receive Date: 20070322
  Receipt Date: 20061128
  Transmission Date: 20070707
  Serious: No
  Sender: FDA-Public Use
  Company Number: US-BRISTOL-MYERS SQUIBB COMPANY-13591219

PATIENT
  Age: 40 Year
  Sex: Female
  Weight: 73 kg

DRUGS (3)
  1. KENALOG [Suspect]
     Indication: INTERVERTEBRAL DISC PROTRUSION
  2. GABAPENTIN [Concomitant]
  3. MULTI-VITAMIN [Concomitant]

REACTIONS (1)
  - MENSTRUATION IRREGULAR [None]
